FAERS Safety Report 10276273 (Version 1)
Quarter: 2014Q3

REPORT INFORMATION
  Report Type: Spontaneous
  Country: US (occurrence: US)
  Receive Date: 20140703
  Receipt Date: 20140703
  Transmission Date: 20150326
  Serious: Yes (Life-Threatening)
  Sender: FDA-Public Use
  Company Number: PHHY2014US079389

PATIENT
  Age: 68 Year
  Sex: Female

DRUGS (4)
  1. METHYLDOPA. [Concomitant]
     Active Substance: METHYLDOPA
  2. CAPTOPRIL. [Suspect]
     Active Substance: CAPTOPRIL
     Indication: SCLERODERMA RENAL CRISIS
  3. LOSARTAN [Concomitant]
     Active Substance: LOSARTAN
  4. HYDRALAZINE [Concomitant]
     Active Substance: HYDRALAZINE HYDROCHLORIDE

REACTIONS (11)
  - Skin swelling [Recovered/Resolved]
  - Eczema [Recovered/Resolved]
  - Hypersensitivity [Recovered/Resolved]
  - Exfoliative rash [Recovered/Resolved]
  - Pyrexia [Recovered/Resolved]
  - Dyspnoea [Recovered/Resolved]
  - Rash erythematous [Recovered/Resolved]
  - Pain of skin [Recovered/Resolved]
  - Skin necrosis [Recovered/Resolved]
  - Rash pruritic [Recovered/Resolved]
  - Swelling face [Recovered/Resolved]
